FAERS Safety Report 8477778 (Version 2)
Quarter: 2012Q4

REPORT INFORMATION
  Report Type: 
  Country: SE (occurrence: SE)
  Receive Date: 20120327
  Receipt Date: 20121126
  Transmission Date: 20130627
  Serious: Yes (Other)
  Sender: FDA-Public Use
  Company Number: PHHY2012SE025000

PATIENT
  Sex: Male

DRUGS (1)
  1. TEGRETOL [Suspect]
     Dates: end: 20120120

REACTIONS (1)
  - Hepatic necrosis [Unknown]
